FAERS Safety Report 15225556 (Version 1)
Quarter: 2018Q4

REPORT INFORMATION
  Report Type: Report from Study
  Country: BR (occurrence: BR)
  Receive Date: 20180801
  Receipt Date: 20180801
  Transmission Date: 20190204
  Serious: Yes (Other)
  Sender: FDA-Public Use
  Company Number: BR-CONCORDIA PHARMACEUTICALS INC.-GSH201306-002011

PATIENT
  Sex: Female
  Weight: 86 kg

DRUGS (7)
  1. APRESOLIN SCT [Suspect]
     Active Substance: HYDRALAZINE HYDROCHLORIDE
     Indication: HYPERTENSION
     Dosage: 1 SUGAR COATED TABLET IN MORNING AND 1 IN NIGHT
     Dates: end: 201304
  2. CLONIDINE. [Suspect]
     Active Substance: CLONIDINE
     Indication: PRODUCT USED FOR UNKNOWN INDICATION
     Route: 065
  3. BENICAR HCT [Concomitant]
     Active Substance: HYDROCHLOROTHIAZIDE\OLMESARTAN MEDOXOMIL
     Route: 065
  4. GLUCOREUMIN [Concomitant]
  5. CLONIDINE. [Suspect]
     Active Substance: CLONIDINE
     Route: 065
  6. NATRILIX [Concomitant]
     Active Substance: INDAPAMIDE
     Route: 065
  7. ATENOLOL. [Concomitant]
     Active Substance: ATENOLOL
     Route: 065

REACTIONS (6)
  - Anxiety [Recovered/Resolved]
  - Hypertension [Recovered/Resolved]
  - Headache [Recovered/Resolved]
  - Nausea [Recovered/Resolved]
  - Nervousness [Recovered/Resolved]
  - Feeling abnormal [Recovered/Resolved]
